FAERS Safety Report 14333758 (Version 1)
Quarter: 2017Q4

REPORT INFORMATION
  Report Type: Spontaneous
  Country: US (occurrence: US)
  Receive Date: 20171227
  Receipt Date: 20171227
  Transmission Date: 20180321
  Serious: Yes (Hospitalization)
  Sender: FDA-Public Use
  Company Number: None

PATIENT
  Age: 48 Year
  Sex: Female

DRUGS (2)
  1. DESMOPRESSIN [Suspect]
     Active Substance: DESMOPRESSIN
     Indication: DIABETES INSIPIDUS
     Dosage: FREQUENCY - OTHER
     Route: 045
     Dates: start: 19960112
  2. POTASSIUM CHLORIDE/SODIUM CHLORIDE [Suspect]
     Active Substance: POTASSIUM CHLORIDE\SODIUM CHLORIDE
     Route: 042
     Dates: start: 20171207, end: 20171208

REACTIONS (6)
  - Overdose [None]
  - Inappropriate antidiuretic hormone secretion [None]
  - Hyponatraemia [None]
  - Urine sodium increased [None]
  - Post procedural complication [None]
  - Urine osmolarity increased [None]

NARRATIVE: CASE EVENT DATE: 20171208
